FAERS Safety Report 10032676 (Version 2)
Quarter: 2014Q2

REPORT INFORMATION
  Report Type: Spontaneous
  Country: CA (occurrence: CA)
  Receive Date: 20140324
  Receipt Date: 20140415
  Transmission Date: 20141212
  Serious: Yes (Other)
  Sender: FDA-Public Use
  Company Number: CA-UCBSA-114707

PATIENT
  Age: 20 Year
  Sex: Female

DRUGS (3)
  1. VIMPAT [Suspect]
     Indication: CONVULSION
     Dates: start: 201308
  2. CARBAMAZEPINE [Concomitant]
     Indication: CONVULSION
  3. VALPROATE [Concomitant]
     Indication: CONVULSION
     Dates: end: 2013

REACTIONS (2)
  - Pregnancy on oral contraceptive [Recovered/Resolved]
  - Pregnancy [Recovered/Resolved]
